FAERS Safety Report 17101031 (Version 2)
Quarter: 2020Q1

REPORT INFORMATION
  Report Type: Spontaneous
  Country: US (occurrence: US)
  Receive Date: 20191202
  Receipt Date: 20200319
  Transmission Date: 20200409
  Serious: No
  Sender: FDA-Public Use
  Company Number: US-SA-2017SA176563

PATIENT
  Age: 52 Year
  Sex: Female
  Weight: 87.5 kg

DRUGS (22)
  1. LANSOPRAZOLE. [Concomitant]
     Active Substance: LANSOPRAZOLE
     Dosage: 30 MG,BID
     Route: 048
  2. FERROUS SULFATE. [Concomitant]
     Active Substance: FERROUS SULFATE
     Dosage: 325 MG,QD
     Route: 048
  3. LISINOPRIL. [Concomitant]
     Active Substance: LISINOPRIL
     Dosage: 10 MG,QD
     Route: 048
  4. MODAFINIL. [Concomitant]
     Active Substance: MODAFINIL
     Dosage: 200 MG,QM
     Route: 048
  5. NAPROXEN. [Concomitant]
     Active Substance: NAPROXEN
     Dosage: 500 MG,BID
     Route: 048
  6. ACETYLSALICYLIC ACID [Concomitant]
     Active Substance: ASPIRIN
     Dosage: 81 MG,QD
     Route: 048
  7. AUBAGIO [Suspect]
     Active Substance: TERIFLUNOMIDE
     Indication: MULTIPLE SCLEROSIS
     Dosage: 14 MG,QD
     Route: 048
     Dates: start: 20170823
  8. AUBAGIO [Suspect]
     Active Substance: TERIFLUNOMIDE
     Dosage: 14 G,QD
     Route: 048
  9. AUBAGIO [Suspect]
     Active Substance: TERIFLUNOMIDE
     Dosage: 14 UNK
     Route: 048
     Dates: start: 20190626
  10. AMLODIPINE [Concomitant]
     Active Substance: AMLODIPINE BESYLATE
     Dosage: 10 MG,UNK
     Route: 048
  11. CYANOCOBALAMIN. [Concomitant]
     Active Substance: CYANOCOBALAMIN
     Dosage: UNK UNK,QD
     Route: 065
  12. LEVONORGESTREL. [Concomitant]
     Active Substance: LEVONORGESTREL
     Dosage: 1 DF,UNK
  13. METOPROLOL. [Concomitant]
     Active Substance: METOPROLOL
     Dosage: 50 MG,QD
     Route: 048
  14. NITROFURANTOIN. [Concomitant]
     Active Substance: NITROFURANTOIN
     Dosage: 100 MG,BID
     Route: 048
  15. AUBAGIO [Suspect]
     Active Substance: TERIFLUNOMIDE
     Dosage: 14 MG, QD
     Route: 048
     Dates: start: 20190706
  16. CITALOPRAM [Concomitant]
     Active Substance: CITALOPRAM HYDROBROMIDE
     Dosage: 40 MG,QD
     Route: 048
  17. CALCIUM CITRATE [Concomitant]
     Active Substance: CALCIUM CITRATE
     Dosage: 200 MG,BID
     Route: 048
  18. AZELASTINE. [Concomitant]
     Active Substance: AZELASTINE HYDROCHLORIDE
     Dosage: 2 DF,BID
     Route: 045
  19. FLUCONAZOLE. [Concomitant]
     Active Substance: FLUCONAZOLE
     Dosage: 1 DF,1X
     Route: 048
  20. DULOXETINE. [Concomitant]
     Active Substance: DULOXETINE
     Dosage: 30 MG,BID
     Route: 048
  21. LACTOBACILLUS ACIDOPHILUS [Concomitant]
     Active Substance: LACTOBACILLUS ACIDOPHILUS
     Dosage: 2 DF,QD
     Route: 048
  22. METFORMIN [Concomitant]
     Active Substance: METFORMIN HYDROCHLORIDE
     Dosage: 500 MG,TID
     Route: 048

REACTIONS (5)
  - Plantar fasciitis [Not Recovered/Not Resolved]
  - Nasopharyngitis [Unknown]
  - Depressed mood [Not Recovered/Not Resolved]
  - Fatigue [Not Recovered/Not Resolved]
  - Diarrhoea [Recovered/Resolved]

NARRATIVE: CASE EVENT DATE: 20191105
